FAERS Safety Report 8847562 (Version 1)
Quarter: 2012Q4

REPORT INFORMATION
  Report Type: 
  Country: US (occurrence: US)
  Receive Date: 20121018
  Receipt Date: 20121018
  Transmission Date: 20130627
  Serious: No
  Sender: FDA-Public Use
  Company Number: US-MYLANLABS-2012S1006449

PATIENT
  Age: 61 Year
  Sex: Female
  Weight: 64.86 kg

DRUGS (9)
  1. RISPERIDONE [Suspect]
     Indication: SCHIZOPHRENIA
     Dosage: Q2D
     Route: 048
     Dates: start: 201111
  2. RISPERIDONE [Suspect]
     Indication: BIPOLAR DISORDER
     Dosage: Q2D
     Route: 048
     Dates: start: 201111
  3. RISPERIDONE [Suspect]
     Indication: SCHIZOPHRENIA
     Dosage: Q2D
     Route: 048
  4. RISPERIDONE [Suspect]
     Indication: BIPOLAR DISORDER
     Dosage: Q2D
     Route: 048
  5. MULTIVITAMINS [Concomitant]
  6. CALCIUM [Concomitant]
  7. FISH OIL [Concomitant]
  8. VITAMIN D [Concomitant]
  9. VITAMIN C [Concomitant]

REACTIONS (5)
  - Drug ineffective [Not Recovered/Not Resolved]
  - Dizziness [Recovering/Resolving]
  - Anxiety [Not Recovered/Not Resolved]
  - Diarrhoea [Recovered/Resolved]
  - Oropharyngeal pain [Not Recovered/Not Resolved]
